FAERS Safety Report 5532141-X (Version None)
Quarter: 2007Q4

REPORT INFORMATION
  Report Type: 
  Country: None (occurrence: None)
  Receive Date: 20071129
  Receipt Date: 20071129
  Transmission Date: 20080405
  Serious: No
  Sender: FDA-Public Use
  Company Number: None

PATIENT
  Sex: Female
  Weight: 81.6475 kg

DRUGS (1)
  1. HYDROCODONE BITARTRATE [Suspect]
     Indication: ADRENOCORTICAL STEROID THERAPY
     Dosage: 1-2 TABLETS  Q 6 HRS PRN PAIN  PO
     Route: 048
     Dates: start: 20071121, end: 20071122

REACTIONS (1)
  - DRUG INEFFECTIVE [None]
